FAERS Safety Report 5009006-5 (Version None)
Quarter: 2006Q2

REPORT INFORMATION
  Report Type: 
  Country: None (occurrence: None)
  Receive Date: 20060518
  Receipt Date: 20060504
  Transmission Date: 20061013
  Serious: Yes (Hospitalization)
  Sender: FDA-Public Use
  Company Number: 145679USA

PATIENT
  Age: 54 Year
  Sex: Male

DRUGS (4)
  1. PIMOZIDE [Suspect]
     Indication: AGITATION
     Dosage: 200 MILLIGRAM
     Route: 048
  2. PIMOZIDE [Suspect]
     Indication: PARANOIA
     Dosage: 200 MILLIGRAM
     Route: 048
  3. HALOPERIDOL [Suspect]
     Indication: AGITATION
     Route: 048
  4. HALOPERIDOL [Suspect]
     Indication: PARANOIA
     Route: 048

REACTIONS (12)
  - BRADYKINESIA [None]
  - DYSARTHRIA [None]
  - DYSKINESIA [None]
  - DYSTONIA [None]
  - FALL [None]
  - GAIT DISTURBANCE [None]
  - HYPERREFLEXIA [None]
  - NERVE DEGENERATION [None]
  - NEURODEGENERATIVE DISORDER [None]
  - POSTURE ABNORMAL [None]
  - STEREOTYPY [None]
  - TREMOR [None]
